FAERS Safety Report 25007097 (Version 1)
Quarter: 2025Q1

REPORT INFORMATION
  Report Type: Report from Study
  Country: EG (occurrence: EG)
  Receive Date: 20250225
  Receipt Date: 20250225
  Transmission Date: 20250409
  Serious: Yes (Other)
  Sender: ROCHE
  Company Number: EG-ROCHE-10000213488

PATIENT
  Age: 70 Year
  Sex: Female
  Weight: 70 kg

DRUGS (3)
  1. PERJETA [Suspect]
     Active Substance: PERTUZUMAB
     Indication: Breast cancer
     Route: 042
     Dates: start: 2023
  2. PHESGO [Suspect]
     Active Substance: HYALURONIDASE-ZZXF\PERTUZUMAB\TRASTUZUMAB
     Indication: Breast cancer
     Dosage: THERAPY START DATE: 11-JUN-2024
     Route: 058
  3. VITAMINS [Concomitant]
     Active Substance: VITAMINS
     Route: 048
     Dates: start: 2024

REACTIONS (11)
  - Abdominal pain upper [Recovered/Resolved]
  - Movement disorder [Recovering/Resolving]
  - Alopecia [Recovering/Resolving]
  - Pain in jaw [Not Recovered/Not Resolved]
  - Skin disorder [Not Recovered/Not Resolved]
  - Bone pain [Not Recovered/Not Resolved]
  - Onychoclasis [Not Recovered/Not Resolved]
  - Vomiting [Recovered/Resolved]
  - Toothache [Not Recovered/Not Resolved]
  - Asthenia [Unknown]
  - Neoplasm [Unknown]

NARRATIVE: CASE EVENT DATE: 20230101
